FAERS Safety Report 21841793 (Version 1)
Quarter: 2023Q1

REPORT INFORMATION
  Report Type: Spontaneous
  Country: DE (occurrence: DE)
  Receive Date: 20230110
  Receipt Date: 20230110
  Transmission Date: 20230418
  Serious: Yes (Other)
  Sender: FDA-Public Use
  Company Number: None

PATIENT
  Age: 53 Year
  Sex: Female

DRUGS (3)
  1. EYLEA [Suspect]
     Active Substance: AFLIBERCEPT
     Indication: Macular oedema
     Dosage: ALLE 4 WOCHEN INJEKTION INS AUGE, SOLUTION FOR INJECTION, 40 MG/ML
     Route: 042
     Dates: start: 20220701
  2. COMIRNATY [Suspect]
     Active Substance: TOZINAMERAN
     Indication: COVID-19 immunisation
     Dosage: SCIENTIFIC NAME: BNT162B2
     Route: 042
  3. ATORVASTATIN CALCIUM [Suspect]
     Active Substance: ATORVASTATIN CALCIUM
     Indication: Macular oedema
     Dosage: ALLE 4 WOCHEN INJEKTION INS AUGE
     Route: 042
     Dates: start: 20220701

REACTIONS (4)
  - Leukopenia [Unknown]
  - Macular oedema [Unknown]
  - Thrombosis [Not Recovered/Not Resolved]
  - Visual impairment [Not Recovered/Not Resolved]

NARRATIVE: CASE EVENT DATE: 20220131
